FAERS Safety Report 5934453-4 (Version None)
Quarter: 2008Q4

REPORT INFORMATION
  Report Type: 
  Country: None (occurrence: None)
  Receive Date: 20081029
  Receipt Date: 20081017
  Transmission Date: 20090506
  Serious: Yes (Other)
  Sender: FDA-Public Use
  Company Number: US-PFIZER INC-2008088160

PATIENT
  Sex: Male

DRUGS (6)
  1. GEODON [Suspect]
     Indication: BIPOLAR I DISORDER
     Dates: start: 20080301
  2. LYRICA [Suspect]
     Indication: FIBROMYALGIA
     Dates: start: 20080121
  3. LYRICA [Suspect]
     Indication: CONVULSION
  4. CLONAZEPAM [Suspect]
  5. LAMICTAL [Suspect]
  6. ALL OTHER THERAPEUTIC PRODUCTS [Concomitant]

REACTIONS (10)
  - COGNITIVE DISORDER [None]
  - CONFUSIONAL STATE [None]
  - DRUG INEFFECTIVE [None]
  - FATIGUE [None]
  - FEELING ABNORMAL [None]
  - ILL-DEFINED DISORDER [None]
  - MANIA [None]
  - MENTAL DISORDER [None]
  - PARALYSIS [None]
  - VIOLENCE-RELATED SYMPTOM [None]
